FAERS Safety Report 5091176-4 (Version None)
Quarter: 2006Q3

REPORT INFORMATION
  Report Type: 
  Country: None (occurrence: None)
  Receive Date: 20060829
  Receipt Date: 20060801
  Transmission Date: 20061208
  Serious: Yes (Other)
  Sender: FDA-Public Use
  Company Number: US-JNJFOC-20060604792

PATIENT
  Sex: Female
  Weight: 31.3 kg

DRUGS (3)
  1. REMICADE [Suspect]
     Route: 042
  2. REMICADE [Suspect]
     Indication: CROHN'S DISEASE
     Dosage: TWO DOSES RECEIVED ON UNKNOWN DATES
     Route: 042
  3. IMURAN [Concomitant]
     Indication: CROHN'S DISEASE

REACTIONS (5)
  - ILEAL STENOSIS [None]
  - INTESTINAL OBSTRUCTION [None]
  - PHARYNGOLARYNGEAL PAIN [None]
  - RASH [None]
  - UPPER RESPIRATORY TRACT INFECTION [None]
